FAERS Safety Report 17368129 (Version 1)
Quarter: 2020Q1

REPORT INFORMATION
  Report Type: Report from Study
  Country: IE (occurrence: IE)
  Receive Date: 20200204
  Receipt Date: 20200204
  Transmission Date: 20200409
  Serious: Yes (Other)
  Sender: FDA-Public Use
  Company Number: NVSC2020IE025266

PATIENT
  Age: 53 Year
  Sex: Female

DRUGS (1)
  1. COSENTYX [Suspect]
     Active Substance: SECUKINUMAB
     Indication: PSORIATIC ARTHROPATHY
     Dosage: 150 MG, UNKNOWN
     Route: 058
     Dates: start: 201911

REACTIONS (2)
  - Lower respiratory tract infection [Unknown]
  - Oral herpes [Unknown]

NARRATIVE: CASE EVENT DATE: 20200123
